FAERS Safety Report 14576520 (Version 1)
Quarter: 2018Q1

REPORT INFORMATION
  Report Type: Spontaneous
  Country: US (occurrence: US)
  Receive Date: 20180227
  Receipt Date: 20180227
  Transmission Date: 20180509
  Serious: No
  Sender: FDA-Public Use
  Company Number: US-CIPLA LTD.-2018US00518

PATIENT

DRUGS (5)
  1. ESCITALOPRAM [Concomitant]
     Active Substance: ESCITALOPRAM OXALATE
     Indication: PRODUCT USED FOR UNKNOWN INDICATION
     Dosage: UNK
     Route: 065
  2. PREDNISONE. [Concomitant]
     Active Substance: PREDNISONE
     Indication: SWELLING
     Dosage: 200 MG, UNK
     Route: 065
  3. GABAPENTIN. [Suspect]
     Active Substance: GABAPENTIN
     Indication: NEUROPATHY PERIPHERAL
     Dosage: 100 MG, BID
     Route: 048
     Dates: start: 2017, end: 201801
  4. SERTRALINE [Concomitant]
     Active Substance: SERTRALINE HYDROCHLORIDE
     Indication: DEPRESSION
     Dosage: UNK
     Route: 065
  5. HYDROXYCHLOROQUINE [Concomitant]
     Active Substance: HYDROXYCHLOROQUINE
     Indication: ARTHRITIS
     Dosage: UNK
     Route: 065

REACTIONS (9)
  - Hair disorder [Unknown]
  - Abdominal pain [Unknown]
  - Drug dose omission [Unknown]
  - Nasal discomfort [Unknown]
  - Hypoaesthesia [Unknown]
  - Incorrect dose administered [Unknown]
  - Facial spasm [Unknown]
  - Asthenia [Unknown]
  - Malaise [Unknown]
